FAERS Safety Report 18223685 (Version 4)
Quarter: 2025Q3

REPORT INFORMATION
  Report Type: Spontaneous
  Country: EU (occurrence: EU)
  Receive Date: 20200902
  Receipt Date: 20250702
  Transmission Date: 20251020
  Serious: Yes (Hospitalization, Other)
  Sender: MYLAN
  Company Number: EU-ADIENNEP-2020AD000401

PATIENT
  Age: 55 Year
  Sex: Female

DRUGS (28)
  1. TACROLIMUS [Suspect]
     Active Substance: TACROLIMUS
     Indication: Prophylaxis against graft versus host disease
  2. TACROLIMUS [Suspect]
     Active Substance: TACROLIMUS
     Route: 065
  3. TACROLIMUS [Suspect]
     Active Substance: TACROLIMUS
     Route: 065
  4. TACROLIMUS [Suspect]
     Active Substance: TACROLIMUS
  5. BUSULFAN [Suspect]
     Active Substance: BUSULFAN
     Indication: Allogenic stem cell transplantation
  6. BUSULFAN [Suspect]
     Active Substance: BUSULFAN
     Route: 065
  7. BUSULFAN [Suspect]
     Active Substance: BUSULFAN
     Route: 065
  8. BUSULFAN [Suspect]
     Active Substance: BUSULFAN
  9. FLUDARABINE [Suspect]
     Active Substance: FLUDARABINE PHOSPHATE
     Indication: Allogenic stem cell transplantation
  10. FLUDARABINE [Suspect]
     Active Substance: FLUDARABINE PHOSPHATE
  11. FLUDARABINE [Suspect]
     Active Substance: FLUDARABINE PHOSPHATE
     Route: 065
  12. FLUDARABINE [Suspect]
     Active Substance: FLUDARABINE PHOSPHATE
     Route: 065
  13. FLUDARABINE [Suspect]
     Active Substance: FLUDARABINE PHOSPHATE
  14. FLUDARABINE [Suspect]
     Active Substance: FLUDARABINE PHOSPHATE
  15. FLUDARABINE [Suspect]
     Active Substance: FLUDARABINE PHOSPHATE
     Route: 065
  16. FLUDARABINE [Suspect]
     Active Substance: FLUDARABINE PHOSPHATE
     Route: 065
  17. METHOTREXATE [Suspect]
     Active Substance: METHOTREXATE
     Indication: Prophylaxis against graft versus host disease
  18. METHOTREXATE [Suspect]
     Active Substance: METHOTREXATE
     Route: 065
  19. METHOTREXATE [Suspect]
     Active Substance: METHOTREXATE
     Route: 065
  20. METHOTREXATE [Suspect]
     Active Substance: METHOTREXATE
  21. THIOTEPA [Suspect]
     Active Substance: THIOTEPA
     Indication: Allogenic stem cell transplantation
  22. THIOTEPA [Suspect]
     Active Substance: THIOTEPA
  23. THIOTEPA [Suspect]
     Active Substance: THIOTEPA
     Route: 065
  24. THIOTEPA [Suspect]
     Active Substance: THIOTEPA
     Route: 065
  25. THIOTEPA [Suspect]
     Active Substance: THIOTEPA
     Route: 065
  26. THIOTEPA [Suspect]
     Active Substance: THIOTEPA
     Route: 065
  27. THIOTEPA [Suspect]
     Active Substance: THIOTEPA
     Route: 065
  28. THIOTEPA [Suspect]
     Active Substance: THIOTEPA
     Route: 065

REACTIONS (8)
  - Graft versus host disease [Unknown]
  - Graft versus host disease in gastrointestinal tract [Recovered/Resolved]
  - Thrombocytopenia [Recovered/Resolved]
  - Campylobacter infection [Unknown]
  - Enteritis [Recovered/Resolved]
  - Bacteraemia [Recovered/Resolved]
  - Cytomegalovirus viraemia [Recovered/Resolved]
  - Cytomegalovirus infection reactivation [Recovered/Resolved]
